FAERS Safety Report 5774432-3 (Version None)
Quarter: 2008Q2

REPORT INFORMATION
  Report Type: 
  Country: None (occurrence: None)
  Receive Date: 20080616
  Receipt Date: 20080604
  Transmission Date: 20081010
  Serious: Yes (Hospitalization, Other)
  Sender: FDA-Public Use
  Company Number: US-PFIZER INC-2008040467

PATIENT
  Sex: Female
  Weight: 77 kg

DRUGS (4)
  1. DILANTIN [Suspect]
     Indication: CONVULSION
     Route: 048
  2. PHENOBARBITAL TAB [Concomitant]
  3. TYLENOL [Concomitant]
  4. ALL OTHER THERAPEUTIC PRODUCTS [Concomitant]

REACTIONS (6)
  - ANTICONVULSANT DRUG LEVEL ABOVE THERAPEUTIC [None]
  - ANTICONVULSANT DRUG LEVEL BELOW THERAPEUTIC [None]
  - NEUROPATHY PERIPHERAL [None]
  - OVERWEIGHT [None]
  - PETIT MAL EPILEPSY [None]
  - THERAPEUTIC AGENT TOXICITY [None]
